FAERS Safety Report 14735254 (Version 1)
Quarter: 2018Q2

REPORT INFORMATION
  Report Type: Spontaneous
  Country: US (occurrence: US)
  Receive Date: 20180403
  Receipt Date: 20180403
  Transmission Date: 20180711
  Serious: Yes (Hospitalization)
  Sender: FDA-Public Use
  Company Number: None

PATIENT
  Age: 69 Year
  Sex: Male

DRUGS (1)
  1. APIXABAN [Suspect]
     Active Substance: APIXABAN
     Indication: ATRIAL FIBRILLATION
     Route: 048
     Dates: start: 20170531, end: 20171112

REACTIONS (4)
  - Gastrointestinal haemorrhage [None]
  - Anaemia [None]
  - Cardio-respiratory arrest [None]
  - Septic shock [None]

NARRATIVE: CASE EVENT DATE: 20171112
